FAERS Safety Report 7144289-7 (Version None)
Quarter: 2010Q4

REPORT INFORMATION
  Report Type: 
  Country: None (occurrence: None)
  Receive Date: 20101208
  Receipt Date: 20101108
  Transmission Date: 20110411
  Serious: No
  Sender: FDA-Public Use
  Company Number: US-BAYER-2010-001125

PATIENT
  Sex: Male
  Weight: 113 kg

DRUGS (2)
  1. ALEVE (CAPLET) [Suspect]
     Indication: PRODUCT USED FOR UNKNOWN INDICATION
     Dosage: 440 MG, ONCE
     Route: 048
     Dates: start: 20101108
  2. CARDIOVASCULAR SYSTEM DRUGS [Concomitant]
     Indication: HYPERTENSION

REACTIONS (1)
  - DRUG INEFFECTIVE [None]
